FAERS Safety Report 21540316 (Version 1)
Quarter: 2022Q4

REPORT INFORMATION
  Report Type: Spontaneous
  Country: JP (occurrence: JP)
  Receive Date: 20221102
  Receipt Date: 20221102
  Transmission Date: 20230112
  Serious: Yes (Death, Other)
  Sender: FDA-Public Use
  Company Number: JP-SAKK-2022SA448440AA

PATIENT
  Age: 34 Year
  Sex: Male

DRUGS (1)
  1. THYMOGLOBULINE [Suspect]
     Active Substance: LAPINE T-LYMPHOCYTE IMMUNE GLOBULIN
     Indication: Liver transplant rejection
     Route: 041

REACTIONS (2)
  - Metastases to peritoneum [Fatal]
  - Intestinal obstruction [Unknown]
